FAERS Safety Report 10243088 (Version 1)
Quarter: 2014Q2

REPORT INFORMATION
  Report Type: Spontaneous
  Country: US (occurrence: None)
  Receive Date: 20140616
  Receipt Date: 20140616
  Transmission Date: 20141212
  Serious: Yes (Death)
  Sender: FDA-Public Use
  Company Number: 140198

PATIENT
  Age: 69 Year
  Sex: Male
  Weight: 108.86 kg

DRUGS (11)
  1. SUPREP BOWEL PREP KIT [Suspect]
     Indication: COLONOSCOPY
     Dosage: 2 X 6OZ BOTTLE
     Route: 048
     Dates: start: 20140512, end: 20140513
  2. INSULIN-LANTUS [Concomitant]
  3. LISINOPRIL [Concomitant]
  4. GABAPENTIN [Concomitant]
  5. DITROPAN [Concomitant]
  6. LOW DOSE ACETYLSALICYLIC ACID (OFF FOR ONE WEEK BEFORE) [Concomitant]
  7. NIACIN [Concomitant]
  8. VITAMIN D [Concomitant]
  9. INVOKANA [Concomitant]
  10. ULTRAM [Concomitant]
  11. JANUMET [Concomitant]

REACTIONS (7)
  - Fatigue [None]
  - Dyspnoea [None]
  - Dizziness [None]
  - Cardiac arrest [None]
  - Cardiac arrest [None]
  - Myocardial infarction [None]
  - Blood pressure increased [None]
